FAERS Safety Report 11269243 (Version 1)
Quarter: 2015Q3

REPORT INFORMATION
  Report Type: Spontaneous
  Country: US (occurrence: None)
  Receive Date: 20150713
  Receipt Date: 20150713
  Transmission Date: 20151125
  Serious: Yes (Hospitalization)
  Sender: FDA-Public Use
  Company Number: None

PATIENT
  Age: 59 Year
  Sex: Male
  Weight: 64.9 kg

DRUGS (7)
  1. OMEPRAZOLE. [Concomitant]
     Active Substance: OMEPRAZOLE
  2. AMINO ACIDS [Concomitant]
     Active Substance: AMINO ACIDS
  3. LISINOPRIL-HYDROCHLOROTHIAZIDE [Concomitant]
     Active Substance: HYDROCHLOROTHIAZIDE\LISINOPRIL
  4. NAPROXEN. [Concomitant]
     Active Substance: NAPROXEN
  5. TYLENOL [Concomitant]
     Active Substance: ACETAMINOPHEN
  6. 90Y-DOTATOC [Suspect]
     Active Substance: EDOTREOTIDE YTTRIUM Y-90
     Indication: NEUROENDOCRINE CARCINOMA
     Route: 042
     Dates: start: 20150707
  7. METOPROLOL [Concomitant]
     Active Substance: METOPROLOL

REACTIONS (2)
  - Nausea [None]
  - Pain [None]

NARRATIVE: CASE EVENT DATE: 20150708
